FAERS Safety Report 21766272 (Version 2)
Quarter: 2022Q4

REPORT INFORMATION
  Report Type: Spontaneous
  Country: US (occurrence: US)
  Receive Date: 20221222
  Receipt Date: 20221226
  Transmission Date: 20230113
  Serious: Yes (Death, Other)
  Sender: FDA-Public Use
  Company Number: US-BRISTOL-MYERS SQUIBB COMPANY-2022-156301

PATIENT
  Age: 82 Year
  Sex: Female
  Weight: 66.1 kg

DRUGS (5)
  1. APIXABAN [Suspect]
     Active Substance: APIXABAN
     Indication: Cerebrovascular accident
  2. ASPIRIN [Suspect]
     Active Substance: ASPIRIN
     Indication: Intracardiac thrombus
  3. HEPARIN [Suspect]
     Active Substance: HEPARIN SODIUM
     Indication: Cerebrovascular accident
  4. HEPARIN [Suspect]
     Active Substance: HEPARIN SODIUM
     Indication: Atrial thrombosis
  5. HEPARIN [Suspect]
     Active Substance: HEPARIN SODIUM
     Indication: Cardiac failure

REACTIONS (1)
  - Haemorrhage intracranial [Fatal]
